FAERS Safety Report 8394648-X (Version None)
Quarter: 2012Q2

REPORT INFORMATION
  Report Type: 
  Country: None (occurrence: None)
  Receive Date: 20120530
  Receipt Date: 20120517
  Transmission Date: 20120825
  Serious: Yes (Other)
  Sender: FDA-Public Use
  Company Number: US-PFIZER INC-2012121001

PATIENT
  Sex: Female
  Weight: 118 kg

DRUGS (5)
  1. ZOLOFT [Suspect]
     Indication: ANXIETY
     Dosage: UNK, 1X/DAY
     Route: 048
     Dates: start: 20120501
  2. EFFEXOR XR [Suspect]
     Indication: DEPRESSION
     Dosage: 150 MG, 1X/DAY
     Route: 048
     Dates: start: 20020101, end: 20120505
  3. BUSPAR [Concomitant]
     Dosage: UNK
  4. EFFEXOR XR [Suspect]
     Dosage: 150 MG, ALTERNATE DAY
     Route: 048
     Dates: start: 20120506, end: 20120513
  5. ZOLOFT [Suspect]
     Indication: RESTLESS LEGS SYNDROME
     Dosage: UNK, 1X/DAY
     Route: 048
     Dates: start: 20111001, end: 20120401

REACTIONS (8)
  - SOCIAL AVOIDANT BEHAVIOUR [None]
  - MOOD ALTERED [None]
  - DEPRESSION [None]
  - WITHDRAWAL SYNDROME [None]
  - STRESS [None]
  - ANAEMIA [None]
  - CRYING [None]
  - ABNORMAL BEHAVIOUR [None]
